FAERS Safety Report 7756662-4 (Version None)
Quarter: 2011Q3

REPORT INFORMATION
  Report Type: 
  Country: None (occurrence: None)
  Receive Date: 20110916
  Receipt Date: 20110914
  Transmission Date: 20111222
  Serious: Yes (Death, Other)
  Sender: FDA-Public Use
  Company Number: BE-ABBOTT-11P-013-0850320-00

PATIENT
  Sex: Male
  Weight: 72 kg

DRUGS (4)
  1. CASODEX [Concomitant]
     Indication: PROSTATE CANCER METASTATIC
     Route: 048
     Dates: start: 20080201, end: 20091001
  2. LUPRON DEPOT [Suspect]
     Indication: PROSTATE CANCER METASTATIC
     Route: 058
     Dates: start: 20080201, end: 20091001
  3. BICALUTAMIDE [Concomitant]
     Indication: ANTIANDROGEN THERAPY
     Dates: start: 20080131
  4. TAMSULOSIN HCL [Concomitant]
     Indication: BLADDER NECK OBSTRUCTION
     Dates: start: 20080201, end: 20091001

REACTIONS (2)
  - RECTAL CANCER METASTATIC [None]
  - PROSTATE CANCER [None]
